FAERS Safety Report 6617331-7 (Version None)
Quarter: 2010Q1

REPORT INFORMATION
  Report Type: 
  Country: None (occurrence: None)
  Receive Date: 20100307
  Receipt Date: 20100118
  Transmission Date: 20100710
  Serious: No
  Sender: FDA-Public Use
  Company Number: US-BAYER-200936515GPV

PATIENT
  Age: 72 Year
  Sex: Male

DRUGS (8)
  1. MOXIFLOXACIN HCL [Suspect]
     Indication: BRONCHITIS CHRONIC
  2. STEROIDS [Concomitant]
     Indication: BRONCHITIS CHRONIC
  3. BRONCHODILATORS [Concomitant]
     Indication: BRONCHITIS CHRONIC
  4. TIOTROPIUM BROMIDE [Concomitant]
     Indication: DRUG USE FOR UNKNOWN INDICATION
     Route: 034
  5. SALMETEROL/FLUTICASONE [Concomitant]
     Indication: DRUG USE FOR UNKNOWN INDICATION
     Route: 034
  6. SALBUTAMOL [Concomitant]
     Indication: DRUG USE FOR UNKNOWN INDICATION
     Route: 034
  7. FOLIC ACID [Concomitant]
     Indication: DRUG USE FOR UNKNOWN INDICATION
  8. METHOTHREXATE [Concomitant]
     Indication: RHEUMATOID ARTHRITIS
     Dosage: LOW DOSE

REACTIONS (6)
  - ASTHENIA [None]
  - FATIGUE [None]
  - HEPATOTOXICITY [None]
  - JAUNDICE [None]
  - OEDEMA PERIPHERAL [None]
  - PANCYTOPENIA [None]
